FAERS Safety Report 13143176 (Version 1)
Quarter: 2017Q1

REPORT INFORMATION
  Report Type: Spontaneous
  Country: US (occurrence: US)
  Receive Date: 20170124
  Receipt Date: 20170124
  Transmission Date: 20170428
  Serious: Yes (Other)
  Sender: FDA-Public Use
  Company Number: US-MYLANLABS-2016M1025020

PATIENT
  Sex: Male
  Weight: 71.66 kg

DRUGS (1)
  1. AMITRIPTYLINE/CHLORDIAZEPOXIDE [Suspect]
     Active Substance: AMITRIPTYLINE\CHLORDIAZEPOXIDE
     Indication: INSOMNIA
     Dosage: 50/20 MG, HS
     Route: 048

REACTIONS (1)
  - Drug dependence [Not Recovered/Not Resolved]
